FAERS Safety Report 6050115-X (Version None)
Quarter: 2009Q1

REPORT INFORMATION
  Report Type: 
  Country: None (occurrence: None)
  Receive Date: 20090121
  Receipt Date: 20090109
  Transmission Date: 20090719
  Serious: Yes (Hospitalization)
  Sender: FDA-Public Use
  Company Number: 2008-04371

PATIENT
  Age: 47 Year
  Sex: Male
  Weight: 84.8 kg

DRUGS (11)
  1. VELCADE [Suspect]
     Indication: MANTLE CELL LYMPHOMA
     Dosage: 1 MG/M2, INTRAVENOUS
     Route: 042
     Dates: start: 20080806, end: 20081107
  2. RITUXIMAB(RITUXIMAB) INJECTION, 375MG/M2 [Suspect]
     Indication: MANTLE CELL LYMPHOMA
     Dosage: 35MG/M2, INTRAVENOUS
     Route: 042
     Dates: start: 20080805, end: 20081107
  3. CYTARABINE [Suspect]
     Indication: MANTLE CELL LYMPHOMA
     Dosage: 3.96 G,  INTRAVENOUS
     Route: 042
     Dates: start: 20080907, end: 20081111
  4. METHOTREXATE [Suspect]
     Indication: MANTLE CELL LYMPHOMA
     Dosage: 150 MG/M2, INTRAVENOUS, 600 MG/M2
     Route: 042
     Dates: start: 20080906, end: 20081108
  5. KEFLEX [Concomitant]
  6. CIPRO [Concomitant]
  7. ACYCLOVIR [Concomitant]
  8. FLUCONAZOLE [Concomitant]
  9. ESOMEPRAZOLE MAGNESIUM [Concomitant]
  10. LOPERAMIDE [Concomitant]
  11. VANCOMYCIN [Concomitant]

REACTIONS (8)
  - BLOOD MAGNESIUM DECREASED [None]
  - CLOSTRIDIUM DIFFICILE COLITIS [None]
  - ESCHERICHIA SEPSIS [None]
  - FEBRILE NEUTROPENIA [None]
  - HEART RATE INCREASED [None]
  - INFECTION [None]
  - PLATELET COUNT DECREASED [None]
  - RESPIRATORY RATE INCREASED [None]
